FAERS Safety Report 9856671 (Version 1)
Quarter: 2014Q1

REPORT INFORMATION
  Report Type: Spontaneous
  Country: US (occurrence: US)
  Receive Date: 20140130
  Receipt Date: 20140130
  Transmission Date: 20141002
  Serious: Yes (Hospitalization)
  Sender: FDA-Public Use
  Company Number: US-GLAXOSMITHKLINE-A1057671A

PATIENT
  Age: 70 Year
  Sex: Female

DRUGS (10)
  1. TYKERB [Suspect]
     Indication: BREAST CANCER
     Dosage: 250MG CYCLIC
     Route: 048
     Dates: start: 2011
  2. LOVAZA [Concomitant]
     Dosage: 2G TWICE PER DAY
  3. OMEPRAZOLE [Concomitant]
     Dosage: 20MG PER DAY
  4. ATORVASTATIN [Concomitant]
  5. VITAMIN D [Concomitant]
  6. DIOVAN [Concomitant]
     Dosage: 80MG PER DAY
  7. VENLAFAXINE [Concomitant]
  8. CARVEDILOL [Concomitant]
     Dosage: 1.5TAB TWICE PER DAY
  9. XELODA [Concomitant]
  10. GEMZAR [Concomitant]

REACTIONS (1)
  - Respiratory disorder [Unknown]
